FAERS Safety Report 13228033 (Version 1)
Quarter: 2017Q1

REPORT INFORMATION
  Report Type: Spontaneous
  Country: IT (occurrence: IT)
  Receive Date: 20170213
  Receipt Date: 20170213
  Transmission Date: 20170428
  Serious: Yes (Death, Life-Threatening, Hospitalization, Other)
  Sender: FDA-Public Use
  Company Number: IT-BAUSCH-BL-2017-002817

PATIENT
  Age: 74 Year
  Sex: Male

DRUGS (1)
  1. METFORMIN [Suspect]
     Active Substance: METFORMIN HYDROCHLORIDE
     Indication: DIABETES MELLITUS
     Route: 065

REACTIONS (7)
  - Toxicity to various agents [Unknown]
  - Lactic acidosis [Unknown]
  - Hypoglycaemia [Unknown]
  - Cardiac arrest [Fatal]
  - Hypotension [Unknown]
  - Myocardial ischaemia [Fatal]
  - Acute kidney injury [Unknown]
